FAERS Safety Report 11105062 (Version 2)
Quarter: 2015Q3

REPORT INFORMATION
  Report Type: Spontaneous
  Country: US (occurrence: US)
  Receive Date: 20150511
  Receipt Date: 20150727
  Transmission Date: 20151125
  Serious: Yes (Disabling)
  Sender: FDA-Public Use
  Company Number: US-ENDO PHARMACEUTICALS INC.-2015-000798

PATIENT
  Age: 53 Year
  Sex: Male
  Weight: 90.8 kg

DRUGS (1)
  1. TESTOPEL [Suspect]
     Active Substance: TESTOSTERONE
     Indication: ANDROGEN REPLACEMENT THERAPY
     Dosage: PATIENT REPORTED HE HAD INSERTIONS OF TESTOPEL ^EVERY 3-4 MONTHS FEBRUARY 2012 AND AUGUST 2012,^ AND
     Route: 058
     Dates: start: 20120201, end: 201211

REACTIONS (2)
  - Cerebral haematoma [Not Recovered/Not Resolved]
  - Device extrusion [Unknown]

NARRATIVE: CASE EVENT DATE: 20130427
